FAERS Safety Report 14828591 (Version 1)
Quarter: 2018Q2

REPORT INFORMATION
  Report Type: Spontaneous
  Country: US (occurrence: US)
  Receive Date: 20180430
  Receipt Date: 20180430
  Transmission Date: 20180711
  Serious: No
  Sender: FDA-Public Use
  Company Number: US-GUERBET-US-20180044

PATIENT

DRUGS (1)
  1. OPTIMARK [Suspect]
     Active Substance: GADOVERSETAMIDE
     Indication: NUCLEAR MAGNETIC RESONANCE IMAGING
     Route: 065

REACTIONS (1)
  - Gadolinium deposition disease [Unknown]
